FAERS Safety Report 4431255-5 (Version None)
Quarter: 2004Q3

REPORT INFORMATION
  Report Type: 
  Country: None (occurrence: None)
  Receive Date: 20040817
  Receipt Date: 20040806
  Transmission Date: 20050211
  Serious: Yes (Hospitalization)
  Sender: FDA-Public Use
  Company Number: 2004227350DE

PATIENT
  Age: 15 Year
  Sex: Female

DRUGS (1)
  1. HEPARIN SODIUM [Suspect]
     Indication: THROMBOSIS PROPHYLAXIS

REACTIONS (4)
  - CAVERNOUS SINUS THROMBOSIS [None]
  - DISEASE PROGRESSION [None]
  - DRUG INEFFECTIVE [None]
  - SUPERIOR SAGITTAL SINUS THROMBOSIS [None]
